FAERS Safety Report 10882439 (Version 1)
Quarter: 2015Q1

REPORT INFORMATION
  Report Type: Spontaneous
  Country: DE (occurrence: DE)
  Receive Date: 20150303
  Receipt Date: 20150303
  Transmission Date: 20150721
  Serious: Yes (Life-Threatening, Hospitalization)
  Sender: FDA-Public Use
  Company Number: DE-TEVA-538132GER

PATIENT
  Age: 70 Year
  Sex: Male
  Weight: 81 kg

DRUGS (8)
  1. MOXIFLOXACIN [Suspect]
     Active Substance: MOXIFLOXACIN
     Indication: ANTIBIOTIC THERAPY
     Dosage: 400 MILLIGRAM DAILY;
     Route: 048
     Dates: start: 20150126, end: 20150128
  2. ACICLOVIR [Concomitant]
     Active Substance: ACYCLOVIR
  3. PIRETANID [Concomitant]
  4. PALEXIA [Concomitant]
     Active Substance: TAPENTADOL HYDROCHLORIDE
  5. DEXAMETHASON [Concomitant]
     Active Substance: DEXAMETHASONE
  6. VALSARTAN. [Concomitant]
     Active Substance: VALSARTAN
  7. ACICLOVIR [Concomitant]
     Active Substance: ACYCLOVIR
  8. REVLIMID [Concomitant]
     Active Substance: LENALIDOMIDE

REACTIONS (3)
  - Drug-induced liver injury [Unknown]
  - Jaundice [Unknown]
  - Coma [Unknown]

NARRATIVE: CASE EVENT DATE: 2015
